FAERS Safety Report 6930308-7 (Version None)
Quarter: 2010Q3

REPORT INFORMATION
  Report Type: 
  Country: None (occurrence: None)
  Receive Date: 20100818
  Receipt Date: 20100810
  Transmission Date: 20110219
  Serious: Yes (Other)
  Sender: FDA-Public Use
  Company Number: A0876173A

PATIENT
  Sex: Male
  Weight: 96 kg

DRUGS (2)
  1. PSOREX [Suspect]
     Indication: PSORIASIS
     Route: 061
     Dates: start: 19950101
  2. OMEGA 3 FATTY ACIDS [Concomitant]
     Dates: start: 20100628

REACTIONS (1)
  - ALANINE AMINOTRANSFERASE INCREASED [None]
